FAERS Safety Report 6397769-6 (Version None)
Quarter: 2009Q4

REPORT INFORMATION
  Report Type: 
  Country: None (occurrence: None)
  Receive Date: 20091007
  Receipt Date: 20090930
  Transmission Date: 20100525
  Serious: Yes (Other)
  Sender: FDA-Public Use
  Company Number: 392733

PATIENT
  Age: 35 Year
  Sex: Female

DRUGS (2)
  1. METHOTREXATE [Suspect]
     Indication: DERMATOMYOSITIS
     Dosage: 20 MG/WEEK
  2. PREDNISONE [Suspect]
     Indication: DERMATOMYOSITIS
     Dosage: 20 MG

REACTIONS (4)
  - GENERAL PHYSICAL HEALTH DETERIORATION [None]
  - GRANULOMATOUS LIVER DISEASE [None]
  - HISTOPLASMOSIS [None]
  - NORMOCHROMIC NORMOCYTIC ANAEMIA [None]
